FAERS Safety Report 20004481 (Version 2)
Quarter: 2025Q3

REPORT INFORMATION
  Report Type: Report from Study
  Country: CN (occurrence: CN)
  Receive Date: 20211028
  Receipt Date: 20250731
  Transmission Date: 20251021
  Serious: Yes (Other)
  Sender: ROCHE
  Company Number: CN-ROCHE-2940953

PATIENT

DRUGS (8)
  1. BEVACIZUMAB [Suspect]
     Active Substance: BEVACIZUMAB
     Indication: Nasopharyngeal cancer
     Dosage: LOW DOSE
     Route: 042
  2. BEVACIZUMAB [Suspect]
     Active Substance: BEVACIZUMAB
     Dosage: MEDIUM DOSE
     Route: 042
  3. METHYLPREDNISOLONE [Suspect]
     Active Substance: METHYLPREDNISOLONE
     Indication: Nasopharyngeal cancer
     Dosage: FOR 4 DAYS
     Route: 042
  4. METHYLPREDNISOLONE [Suspect]
     Active Substance: METHYLPREDNISOLONE
     Dosage: FROM DAYS 5 TO 7
     Route: 042
  5. METHYLPREDNISOLONE [Suspect]
     Active Substance: METHYLPREDNISOLONE
     Dosage: FROM DAYS 8 TO 10
     Route: 042
  6. PREDNISONE [Suspect]
     Active Substance: PREDNISONE
     Indication: Nasopharyngeal cancer
     Dosage: FROM DAYS 11 TO 17
     Route: 065
  7. PREDNISONE [Suspect]
     Active Substance: PREDNISONE
     Route: 065
  8. PREDNISONE [Suspect]
     Active Substance: PREDNISONE
     Dosage: FOR 3 MONTHS
     Route: 065

REACTIONS (18)
  - Haemorrhage intracranial [Unknown]
  - Hypertension [Unknown]
  - Fatigue [Unknown]
  - Infection [Unknown]
  - Epistaxis [Unknown]
  - Insomnia [Unknown]
  - Headache [Unknown]
  - Rash [Unknown]
  - Pyrexia [Unknown]
  - Vision blurred [Unknown]
  - Hyperglycaemia [Unknown]
  - Ischaemic stroke [Unknown]
  - Dysphonia [Unknown]
  - Facial paralysis [Unknown]
  - Dysphagia [Unknown]
  - Weight increased [Unknown]
  - Gastric ulcer [Unknown]
  - Proteinuria [Unknown]
